FAERS Safety Report 9960595 (Version 1)
Quarter: 2014Q1

REPORT INFORMATION
  Report Type: Report from Study
  Country: US (occurrence: US)
  Receive Date: 20140305
  Receipt Date: 20140305
  Transmission Date: 20141002
  Serious: No
  Sender: FDA-Public Use
  Company Number: US-ABBVIE-13P-163-1108727-00

PATIENT
  Age: 55 Year
  Sex: Female

DRUGS (7)
  1. HUMIRA [Suspect]
     Indication: CROHN^S DISEASE
     Dosage: STARTING DOSE
     Dates: start: 20130612
  2. IMURAN [Concomitant]
     Indication: CROHN^S DISEASE
     Dosage: 2.5 TABS DAILY
  3. ZIAC [Concomitant]
     Indication: HYPERTENSION
     Dosage: DAILY
  4. PENTASA [Concomitant]
     Indication: CROHN^S DISEASE
  5. PRILOSEC [Concomitant]
     Indication: GASTROOESOPHAGEAL REFLUX DISEASE
  6. FISH OIL [Concomitant]
     Indication: PRODUCT USED FOR UNKNOWN INDICATION
  7. CETIRIZINE [Concomitant]
     Indication: HYPERSENSITIVITY
     Dosage: DAILY

REACTIONS (1)
  - Injection site pain [Recovered/Resolved]
